FAERS Safety Report 23224221 (Version 1)
Quarter: 2023Q4

REPORT INFORMATION
  Report Type: Spontaneous
  Country: US (occurrence: US)
  Receive Date: 20231124
  Receipt Date: 20231124
  Transmission Date: 20240110
  Serious: No
  Sender: FDA-Public Use
  Company Number: US-LEO Pharma-365312

PATIENT
  Age: 23 Year
  Sex: Female

DRUGS (1)
  1. ADBRY [Suspect]
     Active Substance: TRALOKINUMAB-LDRM
     Indication: Dermatitis atopic
     Dosage: EXP: 09/21/2024
     Route: 058

REACTIONS (3)
  - Injection site erythema [Unknown]
  - Injection site urticaria [Unknown]
  - Urticaria [Unknown]
